FAERS Safety Report 6595808-0 (Version None)
Quarter: 2010Q1

REPORT INFORMATION
  Report Type: 
  Country: None (occurrence: None)
  Receive Date: 20100219
  Receipt Date: 20100219
  Transmission Date: 20100710
  Serious: Yes (Disabling, Other)
  Sender: FDA-Public Use
  Company Number: None

PATIENT
  Sex: Male
  Weight: 83.9154 kg

DRUGS (2)
  1. NEURONTIN [Suspect]
     Dosage: 300 X2 DAILY
     Dates: start: 20050722
  2. NEURONTIN [Suspect]
     Dosage: 300 X2 DAILY
     Dates: start: 20080817

REACTIONS (7)
  - AGGRESSION [None]
  - AMNESIA [None]
  - ANXIETY [None]
  - DEPRESSION [None]
  - MENTAL DISORDER [None]
  - PARANOIA [None]
  - SUICIDE ATTEMPT [None]
